FAERS Safety Report 23514070 (Version 4)
Quarter: 2024Q2

REPORT INFORMATION
  Report Type: Spontaneous
  Country: FR (occurrence: FR)
  Receive Date: 20240212
  Receipt Date: 20240516
  Transmission Date: 20240716
  Serious: Yes (Other)
  Sender: FDA-Public Use
  Company Number: FR-009507513-2312FRA009435

PATIENT
  Age: 3 Week
  Sex: Male
  Weight: 3.5 kg

DRUGS (7)
  1. SUGAMMADEX SODIUM [Suspect]
     Active Substance: SUGAMMADEX SODIUM
     Indication: Neuromuscular blockade reversal
     Dosage: 15 MILLIGRAM (4.3 MG/KG-1)
  2. SUGAMMADEX SODIUM [Suspect]
     Active Substance: SUGAMMADEX SODIUM
     Dosage: 15 MILLIGRAM (4.3 MG/KG-1)
  3. ROCURONIUM BROMIDE [Suspect]
     Active Substance: ROCURONIUM BROMIDE
     Indication: Neuromuscular blockade
     Dosage: 8 MILLIGRAM (2.3 MG/KG), ONCE
  4. PROPOFOL [Concomitant]
     Active Substance: PROPOFOL
     Indication: Induction of anaesthesia
     Dosage: 3.4 MILLIGRAM/KILOGRAM
  5. REMIFENTANIL [Concomitant]
     Active Substance: REMIFENTANIL
     Indication: Induction of anaesthesia
     Dosage: 2.4 MILLIGRAM/KILOGRAM
  6. FENTANYL [Concomitant]
     Active Substance: FENTANYL\FENTANYL CITRATE
     Indication: Maintenance of anaesthesia
     Dosage: 2.1 MILLIGRAM/KILOGRAM
  7. SEVOFLURANE [Concomitant]
     Active Substance: SEVOFLURANE
     Indication: Maintenance of anaesthesia

REACTIONS (9)
  - Neonatal respiratory distress [Recovered/Resolved]
  - Neonatal respiratory arrest [Recovered/Resolved]
  - Hypotonia neonatal [Recovered/Resolved]
  - Cyanosis neonatal [Recovered/Resolved]
  - Recurrence of neuromuscular blockade [Recovered/Resolved]
  - Bradypnoea [Recovered/Resolved]
  - Product administered to patient of inappropriate age [Unknown]
  - Accidental overdose [Unknown]
  - Unadjusted dose administered [Unknown]
